FAERS Safety Report 7460485-3 (Version None)
Quarter: 2011Q2

REPORT INFORMATION
  Report Type: 
  Country: None (occurrence: None)
  Receive Date: 20110505
  Receipt Date: 20110502
  Transmission Date: 20111010
  Serious: Yes (Other)
  Sender: FDA-Public Use
  Company Number: US-PFIZER INC-2010081119

PATIENT
  Sex: Female

DRUGS (3)
  1. RHINOCORT [Concomitant]
     Indication: HYPERSENSITIVITY
     Dosage: UNK
     Dates: start: 20080101
  2. MONTELUKAST [Concomitant]
     Indication: ASTHMA
     Dosage: UNK
     Dates: start: 20080201
  3. CHANTIX [Suspect]
     Indication: SMOKING CESSATION THERAPY
     Dosage: 0.5 - 1.0 MG, STARTER PACK
     Dates: start: 20080307, end: 20080701

REACTIONS (6)
  - SUICIDE ATTEMPT [None]
  - DEPRESSION [None]
  - ANXIETY [None]
  - MENTAL DISORDER [None]
  - AGGRESSION [None]
  - ABNORMAL BEHAVIOUR [None]
